FAERS Safety Report 19101282 (Version 1)
Quarter: 2021Q2

REPORT INFORMATION
  Report Type: Spontaneous
  Country: US (occurrence: US)
  Receive Date: 20210406
  Receipt Date: 20210406
  Transmission Date: 20210717
  Serious: Yes (Hospitalization)
  Sender: FDA-Public Use
  Company Number: None

PATIENT
  Age: 52 Year
  Sex: Female

DRUGS (7)
  1. HUMIRA [Suspect]
     Active Substance: ADALIMUMAB
     Indication: RHEUMATOID ARTHRITIS
     Dosage: ?          OTHER DOSE:1 PEN;OTHER FREQUENCY:EVERY 14 DAYS;?
     Route: 058
     Dates: start: 20190419
  2. CARAFATE [Concomitant]
     Active Substance: SUCRALFATE
  3. CLARITIN [Concomitant]
     Active Substance: LORATADINE
  4. PREMARIN VAG CRE [Concomitant]
  5. BUPROPION. [Concomitant]
     Active Substance: BUPROPION
  6. METHOCARBAM [Concomitant]
     Active Substance: METHOCARBAMOL
  7. CYCLOBENZAPR [Concomitant]
     Active Substance: CYCLOBENZAPRINE

REACTIONS (3)
  - Mouth swelling [None]
  - Swollen tongue [None]
  - Swelling face [None]

NARRATIVE: CASE EVENT DATE: 202010
